FAERS Safety Report 18996317 (Version 1)
Quarter: 2021Q1

REPORT INFORMATION
  Report Type: Spontaneous
  Country: US (occurrence: US)
  Receive Date: 20210310
  Receipt Date: 20210310
  Transmission Date: 20210420
  Serious: Yes (Hospitalization)
  Sender: FDA-Public Use
  Company Number: None

PATIENT
  Age: 69 Year
  Sex: Female

DRUGS (8)
  1. BUDES/FORMOT AER [Concomitant]
     Dates: start: 20201211
  2. QVAR REDIHA AER [Concomitant]
     Dates: start: 20201208
  3. QVAR REDIHA AER [Concomitant]
     Dates: start: 20201208
  4. AFINITOR [Suspect]
     Active Substance: EVEROLIMUS
     Indication: PRODUCT USED FOR UNKNOWN INDICATION
     Route: 048
     Dates: start: 20201120
  5. ZOLPIDEM [Concomitant]
     Active Substance: ZOLPIDEM TARTRATE
     Dates: start: 20210222
  6. LISINOPRIL. [Concomitant]
     Active Substance: LISINOPRIL
     Dates: start: 20200923
  7. LISINOPRIL. [Concomitant]
     Active Substance: LISINOPRIL
     Dates: start: 20201218
  8. PREDNISONE. [Concomitant]
     Active Substance: PREDNISONE
     Dates: start: 20201215

REACTIONS (2)
  - Medical procedure [None]
  - Therapy interrupted [None]

NARRATIVE: CASE EVENT DATE: 20210309
